FAERS Safety Report 6781364-0 (Version None)
Quarter: 2010Q2

REPORT INFORMATION
  Report Type: 
  Country: None (occurrence: None)
  Receive Date: 20100617
  Receipt Date: 20100617
  Transmission Date: 20101027
  Serious: Yes (Other)
  Sender: FDA-Public Use
  Company Number: None

PATIENT
  Sex: Female
  Weight: 58.0604 kg

DRUGS (1)
  1. SINGULAIR [Suspect]
     Indication: ASTHMA
     Dosage: 10 MG ONE TIME DAY ORAL
     Route: 048
     Dates: start: 20100120

REACTIONS (2)
  - MUSCLE SPASMS [None]
  - PARAESTHESIA [None]
